FAERS Safety Report 6090960-8 (Version None)
Quarter: 2009Q1

REPORT INFORMATION
  Report Type: 
  Country: None (occurrence: None)
  Receive Date: 20090225
  Receipt Date: 20090213
  Transmission Date: 20090719
  Serious: Yes (Death)
  Sender: FDA-Public Use
  Company Number: JP-RANBAXY-2009RR-21906

PATIENT
  Age: 31 Year
  Sex: Female

DRUGS (8)
  1. CIPROFLOXACIN [Suspect]
  2. ISONIAZID [Suspect]
  3. STREPTOMYCIN [Suspect]
  4. RIFAMPICIN [Suspect]
  5. TOBRAMYCINE [Suspect]
  6. ETHAMBUTOL HCL [Suspect]
  7. CYCLOSPORINE [Suspect]
  8. ERYTHROMYCIN [Suspect]

REACTIONS (1)
  - ATYPICAL MYCOBACTERIAL INFECTION [None]
